FAERS Safety Report 9460663 (Version 1)
Quarter: 2013Q3

REPORT INFORMATION
  Report Type: Spontaneous
  Country: FR (occurrence: None)
  Receive Date: 20130813
  Receipt Date: 20130813
  Transmission Date: 20140515
  Serious: Yes (Life-Threatening, Hospitalization)
  Sender: FDA-Public Use
  Company Number: SYM-2013-07906

PATIENT
  Age: 0 Day
  Sex: Female

DRUGS (13)
  1. FLAGYL [Suspect]
     Indication: SEPTIC SHOCK
     Dosage: INTRAVENOUS (NOT OTHERWISE SPECIFED)
     Route: 042
     Dates: start: 20130712, end: 20130713
  2. NABUCOX [Suspect]
     Indication: PAIN
     Route: 048
     Dates: start: 20130704, end: 20130712
  3. ROCEPHINE [Suspect]
     Indication: SEPTIC SHOCK
     Dosage: INTRAVENOUS (NOT OTHERWISE SPECIFIED)
     Route: 042
     Dates: start: 20130712, end: 20130715
  4. PRAVASTATNE  (PRAVASTATINE SODIUM) (PRAVASTTIN SODIUM) [Concomitant]
  5. ALLOPURINOL (ALLOPURINOL) (ALLOPURINOL) [Concomitant]
  6. ZOPICLONE (ZOPICLONE) (ZOPICLONE) [Concomitant]
  7. INEXIUM (ESOMEPRAZOLE MAGNEIUM) (ESOMEPRAZOLE MAGNESIUM) [Concomitant]
  8. LASILIX (FUROSEMIDE) (FUROSEMIDE) [Concomitant]
  9. IPERTEN (MANIDIPINE HYDROCHLORIDE) (MANIDIPINE HYDROCHLORIDE) [Concomitant]
  10. SOTALEX SOTALOL HYDROCHLORIDE) (SOTALOL HYDROCHLORIDE) [Concomitant]
  11. KARDEGOC ACETYLSALICYLATE LYSINE) (ACETYLSALICYLATE LYSINE) [Concomitant]
  12. PLAVIX (CLOPIDOGREL BISULFATE) (CLOPIDOGREL BISULFATE) [Concomitant]
  13. DAFALGAN (PARACETAMOL) (PARACETAMOL) [Concomitant]

REACTIONS (1)
  - Stevens-Johnson syndrome [None]
